FAERS Safety Report 21727553 (Version 1)
Quarter: 2022Q4

REPORT INFORMATION
  Report Type: Spontaneous
  Country: US (occurrence: US)
  Receive Date: 20221214
  Receipt Date: 20221214
  Transmission Date: 20230113
  Serious: No
  Sender: FDA-Public Use
  Company Number: US-ALVOGEN-2022-ALVOGEN-120945

PATIENT
  Sex: Female

DRUGS (4)
  1. FENTANYL [Suspect]
     Active Substance: FENTANYL
     Indication: Pain
     Dosage: 25 MCG/HOUR
     Route: 062
     Dates: start: 20220920
  2. FENTANYL [Suspect]
     Active Substance: FENTANYL
     Indication: Pain
     Dosage: 25 MCG/HOUR
     Route: 062
     Dates: start: 20220923
  3. FENTANYL [Suspect]
     Active Substance: FENTANYL
     Indication: Pain
     Dosage: 25 MCG/HOUR
     Route: 062
     Dates: start: 20220926
  4. Belbuca (Buprenorphine) [Concomitant]
     Indication: Product used for unknown indication
     Dosage: 450 MCG

REACTIONS (2)
  - Gait disturbance [Unknown]
  - Drug ineffective [Unknown]
